FAERS Safety Report 11893376 (Version 1)
Quarter: 2016Q1

REPORT INFORMATION
  Report Type: Spontaneous
  Country: US (occurrence: US)
  Receive Date: 20160106
  Receipt Date: 20160106
  Transmission Date: 20160526
  Serious: Yes (Other)
  Sender: FDA-Public Use
  Company Number: US-TEVA-622676USA

PATIENT
  Age: 66 Year
  Sex: Male
  Weight: 95.34 kg

DRUGS (2)
  1. NICOTINIC ACID [Suspect]
     Active Substance: NIACIN
     Indication: HYPERLIPIDAEMIA
     Dosage: 4000 MILLIGRAM DAILY;
     Route: 065
     Dates: start: 201502, end: 20151012
  2. NICOTINIC ACID [Suspect]
     Active Substance: NIACIN
     Dosage: 2000 MILLIGRAM DAILY;
     Route: 065
     Dates: end: 201502

REACTIONS (4)
  - Road traffic accident [Unknown]
  - Loss of consciousness [Unknown]
  - Flushing [Unknown]
  - Dizziness [Unknown]

NARRATIVE: CASE EVENT DATE: 2015
